FAERS Safety Report 6284899-2 (Version None)
Quarter: 2009Q3

REPORT INFORMATION
  Report Type: 
  Country: None (occurrence: None)
  Receive Date: 20090727
  Receipt Date: 20090715
  Transmission Date: 20100115
  Serious: Yes (Other)
  Sender: FDA-Public Use
  Company Number: BE-ELI_LILLY_AND_COMPANY-BE200905000096

PATIENT
  Sex: Male
  Weight: 98 kg

DRUGS (3)
  1. BYETTA [Suspect]
     Indication: TYPE 2 DIABETES MELLITUS
     Dosage: 10 UG, UNK
     Route: 058
     Dates: start: 20090416, end: 20090417
  2. GLUCOPHAGE [Concomitant]
     Indication: DIABETES MELLITUS
     Dosage: 850 UNK, 2/D
     Route: 048
  3. AMARYL [Concomitant]
     Indication: DIABETES MELLITUS
     Dosage: 4 UNK, 2/D
     Route: 048

REACTIONS (3)
  - DYSPNOEA [None]
  - FACE OEDEMA [None]
  - HYPERSENSITIVITY [None]
